FAERS Safety Report 9718929 (Version 3)
Quarter: 2013Q4

REPORT INFORMATION
  Report Type: Report from Study
  Country: US (occurrence: US)
  Receive Date: 20131127
  Receipt Date: 20131218
  Transmission Date: 20140711
  Serious: Yes (Death, Hospitalization)
  Sender: FDA-Public Use
  Company Number: US-ACTELION-A-US2013-91618

PATIENT
  Age: 86 Year
  Sex: Female

DRUGS (1)
  1. TRACLEER [Suspect]
     Indication: PULMONARY ARTERIAL HYPERTENSION
     Dosage: 62.5 MG, BID
     Route: 048
     Dates: start: 2008, end: 20131118

REACTIONS (5)
  - Renal failure acute [Fatal]
  - Urinary tract infection [Unknown]
  - Cholelithiasis [Recovering/Resolving]
  - Cholecystectomy [Unknown]
  - Nausea [Recovering/Resolving]
